FAERS Safety Report 6266413-0 (Version None)
Quarter: 2009Q3

REPORT INFORMATION
  Report Type: 
  Country: None (occurrence: None)
  Receive Date: 20090713
  Receipt Date: 20090704
  Transmission Date: 20100115
  Serious: Yes (Other)
  Sender: FDA-Public Use
  Company Number: US-AVENTIS-200915869US

PATIENT
  Sex: Female

DRUGS (2)
  1. LANTUS [Suspect]
     Route: 058
     Dates: start: 20050101
  2. OPTICLIK GREY [Suspect]
     Dates: start: 20050101

REACTIONS (2)
  - MACULAR OEDEMA [None]
  - VISUAL IMPAIRMENT [None]
